FAERS Safety Report 4951645-1 (Version None)
Quarter: 2006Q1

REPORT INFORMATION
  Report Type: 
  Country: None (occurrence: None)
  Receive Date: 20060317
  Receipt Date: 20060308
  Transmission Date: 20060701
  Serious: Yes (Hospitalization)
  Sender: FDA-Public Use
  Company Number: 2005088888

PATIENT
  Age: 70 Year
  Sex: Female

DRUGS (10)
  1. LYRICA [Suspect]
     Indication: PAIN
     Dosage: ORAL
     Route: 048
     Dates: start: 20050118, end: 20050206
  2. OXYCONTIN [Concomitant]
  3. OXYNORM (OXYCODONE HYDROCHLORIDE) [Concomitant]
  4. PAMOL (PARACETAMOL) [Concomitant]
  5. FUROSEMIDE [Concomitant]
  6. POTASSIUM CHLORIDE [Concomitant]
  7. KININ (QUININE HYDROCHLORIDE) [Concomitant]
  8. ASPIRIN [Concomitant]
  9. BROMAM (BROMAZEPAM) [Concomitant]
  10. NEXIUM [Concomitant]

REACTIONS (9)
  - ANGINA UNSTABLE [None]
  - DEPRESSED LEVEL OF CONSCIOUSNESS [None]
  - DIPLOPIA [None]
  - DISSOCIATION [None]
  - DIZZINESS [None]
  - FATIGUE [None]
  - HYPERCHOLESTEROLAEMIA [None]
  - SOMNOLENCE [None]
  - TREMOR [None]
